FAERS Safety Report 21103863 (Version 2)
Quarter: 2022Q3

REPORT INFORMATION
  Report Type: Report from Study
  Country: AU (occurrence: AU)
  Receive Date: 20220720
  Receipt Date: 20220727
  Transmission Date: 20221026
  Serious: Yes (Hospitalization)
  Sender: FDA-Public Use
  Company Number: AU-NOVARTISPH-NVSC2022AU163590

PATIENT
  Sex: Female

DRUGS (1)
  1. KESIMPTA [Suspect]
     Active Substance: OFATUMUMAB
     Indication: Relapsing-remitting multiple sclerosis
     Dosage: 20 MG, QMO
     Route: 058
     Dates: start: 20211112

REACTIONS (2)
  - SARS-CoV-2 test positive [Unknown]
  - Malaise [Not Recovered/Not Resolved]
